FAERS Safety Report 25897873 (Version 2)
Quarter: 2025Q4

REPORT INFORMATION
  Report Type: Spontaneous
  Country: US (occurrence: US)
  Receive Date: 20251008
  Receipt Date: 20251010
  Transmission Date: 20260118
  Serious: No
  Sender: PFIZER
  Company Number: US-PFIZER INC-202500197298

PATIENT
  Age: 9 Year
  Sex: Male

DRUGS (2)
  1. NGENLA [Suspect]
     Active Substance: SOMATROGON-GHLA
     Dosage: PEN ONLY WENT TO 10 1/2MG
     Dates: start: 20251003
  2. NGENLA [Suspect]
     Active Substance: SOMATROGON-GHLA
     Dosage: 13 MG, WEEKLY (13 MG PER WEEK)

REACTIONS (2)
  - Incorrect dose administered by device [Unknown]
  - Device delivery system issue [Unknown]

NARRATIVE: CASE EVENT DATE: 20251003
